FAERS Safety Report 12304833 (Version 1)
Quarter: 2016Q2

REPORT INFORMATION
  Report Type: Spontaneous
  Country: US (occurrence: None)
  Receive Date: 20160425
  Receipt Date: 20160425
  Transmission Date: 20160815
  Serious: No
  Sender: FDA-Public Use
  Company Number: None

PATIENT
  Age: 60 Year
  Sex: Male

DRUGS (1)
  1. HEPARIN SOD 100U/ML 5ML SYR BD MEDICAL SURGICAL SYSTEMS [Suspect]
     Active Substance: HEPARIN SODIUM
     Indication: MENINGITIS BACTERIAL
     Dosage: 3ML FOLLOWING EACH DOSE OF ABX IV
     Route: 042
     Dates: start: 20150412, end: 20160416

REACTIONS (1)
  - Heparin-induced thrombocytopenia [None]

NARRATIVE: CASE EVENT DATE: 20160415
